FAERS Safety Report 14196479 (Version 2)
Quarter: 2018Q1

REPORT INFORMATION
  Report Type: Spontaneous
  Country: US (occurrence: US)
  Receive Date: 20171116
  Receipt Date: 20180102
  Transmission Date: 20180508
  Serious: Yes (Other)
  Sender: FDA-Public Use
  Company Number: US-BAYER-2017-221047

PATIENT
  Age: 25 Year
  Sex: Female

DRUGS (5)
  1. MIRENA [Suspect]
     Active Substance: LEVONORGESTREL
     Indication: CONTRACEPTION
  2. CYTOTEC [Concomitant]
     Active Substance: MISOPROSTOL
     Indication: UTERINE CERVIX STENOSIS
     Dosage: 400 MG
     Route: 067
     Dates: start: 20171205, end: 20171205
  3. MIRENA [Suspect]
     Active Substance: LEVONORGESTREL
     Indication: CONTRACEPTION
     Dosage: 20 MCG/24HR, CONT
     Route: 015
     Dates: start: 20140306, end: 20170321
  4. MIRENA [Suspect]
     Active Substance: LEVONORGESTREL
     Indication: CONTRACEPTION
     Dosage: 20 MCG/24HR, CONT
     Route: 015
     Dates: start: 20171205, end: 20171205
  5. BETADINE [Concomitant]
     Active Substance: POVIDONE-IODINE
     Indication: INFECTION PROPHYLAXIS
     Dosage: WITH SWAB 3 TIMES
     Route: 061
     Dates: start: 20171205, end: 20171205

REACTIONS (5)
  - Complication of device insertion [None]
  - Procedural pain [None]
  - Menstruation irregular [None]
  - Abdominal pain lower [None]
  - Procedural haemorrhage [None]

NARRATIVE: CASE EVENT DATE: 20171205
